FAERS Safety Report 23026978 (Version 1)
Quarter: 2023Q4

REPORT INFORMATION
  Report Type: Spontaneous
  Country: US (occurrence: US)
  Receive Date: 20231004
  Receipt Date: 20231004
  Transmission Date: 20240110
  Serious: Yes (Other)
  Sender: FDA-Public Use
  Company Number: US-ELI_LILLY_AND_COMPANY-US202310000247

PATIENT
  Age: 48 Year
  Sex: Female

DRUGS (1)
  1. ADCIRCA [Suspect]
     Active Substance: TADALAFIL
     Indication: Pulmonary arterial hypertension
     Dosage: 40 MG, DAILY
     Route: 048
     Dates: start: 202306

REACTIONS (5)
  - Brain neoplasm [Unknown]
  - Pruritus [Unknown]
  - Dry skin [Unknown]
  - Hypoacusis [Unknown]
  - Visual impairment [Unknown]

NARRATIVE: CASE EVENT DATE: 20230901
